FAERS Safety Report 5875427-1 (Version None)
Quarter: 2008Q3

REPORT INFORMATION
  Report Type: 
  Country: None (occurrence: None)
  Receive Date: 20080909
  Receipt Date: 20080827
  Transmission Date: 20090109
  Serious: Yes (Hospitalization)
  Sender: FDA-Public Use
  Company Number: US-AMGEN-US304312

PATIENT
  Sex: Male

DRUGS (6)
  1. ARANESP [Suspect]
     Indication: ANAEMIA OF MALIGNANT DISEASE
     Dates: start: 20080211
  2. ALLOPURINOL [Concomitant]
  3. EXCEDRIN (MIGRAINE) [Concomitant]
  4. NAPROXEN [Concomitant]
  5. METOPROLOL SUCCINATE [Concomitant]
     Dates: start: 20080801
  6. LISINOPRIL [Concomitant]
     Dates: end: 20080801

REACTIONS (5)
  - ANAEMIA [None]
  - ASTHENIA [None]
  - FATIGUE [None]
  - THERAPEUTIC RESPONSE DECREASED [None]
  - VENTRICULAR TACHYCARDIA [None]
